FAERS Safety Report 7975186-2 (Version None)
Quarter: 2011Q4

REPORT INFORMATION
  Report Type: 
  Country: None (occurrence: None)
  Receive Date: 20111213
  Receipt Date: 20111103
  Transmission Date: 20120403
  Serious: No
  Sender: FDA-Public Use
  Company Number: US-AMGEN-USASP2011058093

PATIENT
  Sex: Female

DRUGS (4)
  1. LATANOPROST [Concomitant]
  2. ALPHAGAN [Concomitant]
  3. ENBREL [Suspect]
     Indication: RHEUMATOID ARTHRITIS
     Dosage: 50 MG, QWK
  4. BROMDAY [Concomitant]

REACTIONS (4)
  - VISION BLURRED [None]
  - RETINAL CYST [None]
  - CHROMATOPSIA [None]
  - INTRAOCULAR PRESSURE INCREASED [None]
